FAERS Safety Report 5213964-3 (Version None)
Quarter: 2007Q1

REPORT INFORMATION
  Report Type: 
  Country: None (occurrence: None)
  Receive Date: 20070122
  Receipt Date: 20070115
  Transmission Date: 20070707
  Serious: Yes (Life-Threatening, Other)
  Sender: FDA-Public Use
  Company Number: PHBS2006JP16177

PATIENT
  Age: 20 Year
  Sex: Female
  Weight: 68 kg

DRUGS (8)
  1. TEGRETOL [Suspect]
     Indication: EPILEPSY
     Dosage: 500 MG/DAY
     Route: 048
     Dates: end: 20060913
  2. EXCEGRAN [Suspect]
     Indication: EPILEPSY
     Dosage: 100 MG/DAY
     Route: 048
     Dates: start: 20040901, end: 20060913
  3. EXCEGRAN [Suspect]
     Dosage: 100 MG/DAY
     Route: 048
     Dates: start: 20061013
  4. ALEVIATIN [Concomitant]
     Indication: CONVULSION
     Dosage: 250 MG/DAY
     Route: 042
     Dates: start: 20060913, end: 20060913
  5. CERCINE [Concomitant]
     Indication: CONVULSION
     Dosage: 10 MG/DAY
     Route: 042
     Dates: start: 20060913, end: 20060913
  6. DORMICUM [Concomitant]
     Indication: CONVULSION
     Dosage: 0.1 MG/KG/DAY
     Route: 042
     Dates: start: 20060913, end: 20061017
  7. GLYCERIN [Concomitant]
  8. MYSTAN [Concomitant]

REACTIONS (14)
  - BLOOD CREATININE INCREASED [None]
  - BLOOD LACTATE DEHYDROGENASE INCREASED [None]
  - BLOOD PRESSURE INCREASED [None]
  - BLOOD UREA INCREASED [None]
  - BRAIN OEDEMA [None]
  - CONVULSION [None]
  - DEPRESSED LEVEL OF CONSCIOUSNESS [None]
  - DIALYSIS [None]
  - HYPERTENSIVE ENCEPHALOPATHY [None]
  - LYMPHOCYTE STIMULATION TEST POSITIVE [None]
  - NEUTROPHIL COUNT INCREASED [None]
  - RENAL FAILURE ACUTE [None]
  - URINE OUTPUT DECREASED [None]
  - WHITE BLOOD CELL COUNT INCREASED [None]
